FAERS Safety Report 21108421 (Version 1)
Quarter: 2022Q3

REPORT INFORMATION
  Report Type: Spontaneous
  Country: NP (occurrence: NP)
  Receive Date: 20220721
  Receipt Date: 20220721
  Transmission Date: 20221026
  Serious: Yes (Other)
  Sender: FDA-Public Use
  Company Number: NP-SUN PHARMACEUTICAL INDUSTRIES LTD-2022R1-344987

PATIENT
  Age: 16 Year
  Sex: Male

DRUGS (6)
  1. PANTOPRAZOLE [Suspect]
     Active Substance: PANTOPRAZOLE
     Indication: Anaphylactic reaction
     Dosage: 40 MILLIGRAM, UNK
     Route: 042
  2. RANITIDINE [Suspect]
     Active Substance: RANITIDINE
     Indication: Anaphylactic reaction
     Dosage: 50 MILLIGRAM, UNK
     Route: 042
  3. HYDROCORTISONE [Suspect]
     Active Substance: HYDROCORTISONE
     Indication: Anaphylactic reaction
     Dosage: 200 MILLIGRAM, UNK
     Route: 042
  4. BUTYLSCOPOLAMINE BROMIDE [Suspect]
     Active Substance: BUTYLSCOPOLAMINE BROMIDE
     Indication: Anaphylactic reaction
     Dosage: 20 MILLIGRAM, UNK
     Route: 042
  5. KETOROLAC [Suspect]
     Active Substance: KETOROLAC TROMETHAMINE
     Indication: Anaphylactic reaction
     Dosage: 30 MILLIGRAM, UNK
     Route: 042
  6. PHENIRAMINE MALEATE [Suspect]
     Active Substance: PHENIRAMINE MALEATE
     Indication: Anaphylactic reaction
     Dosage: 90 MILLIGRAM, UNK
     Route: 042

REACTIONS (1)
  - Condition aggravated [Unknown]
